FAERS Safety Report 17014315 (Version 1)
Quarter: 2019Q4

REPORT INFORMATION
  Report Type: Spontaneous
  Country: US (occurrence: US)
  Receive Date: 20191111
  Receipt Date: 20191111
  Transmission Date: 20200122
  Serious: No
  Sender: FDA-Public Use
  Company Number: US-ALLERGAN-1849666US

PATIENT
  Age: 70 Year

DRUGS (3)
  1. PYLERA [Suspect]
     Active Substance: BISMUTH SUBCITRATE POTASSIUM\METRONIDAZOLE\TETRACYCLINE HYDROCHLORIDE
     Indication: HELICOBACTER INFECTION
     Dosage: ACTUAL: 140,125,125 MG TABLETS A DAY AT MEALS AND BEDTIME
     Route: 048
     Dates: start: 20181003, end: 201810
  2. PYLERA [Suspect]
     Active Substance: BISMUTH SUBCITRATE POTASSIUM\METRONIDAZOLE\TETRACYCLINE HYDROCHLORIDE
     Indication: GASTRITIS EROSIVE
  3. DYALISIS [Concomitant]
     Dosage: UNK

REACTIONS (14)
  - Off label use [Unknown]
  - Tinnitus [Recovered/Resolved]
  - Vision blurred [Recovered/Resolved]
  - Blood pressure abnormal [Recovered/Resolved]
  - Nervousness [Recovered/Resolved]
  - Fall [Recovered/Resolved]
  - Tooth discolouration [Recovered/Resolved]
  - Photophobia [Recovered/Resolved]
  - Faeces discoloured [Recovered/Resolved]
  - Pruritus [Recovered/Resolved]
  - Confusional state [Recovered/Resolved]
  - Dizziness [Recovered/Resolved]
  - Skin exfoliation [Recovered/Resolved]
  - Vulvovaginal pruritus [Recovered/Resolved]

NARRATIVE: CASE EVENT DATE: 201810
